FAERS Safety Report 16261978 (Version 3)
Quarter: 2019Q2

REPORT INFORMATION
  Report Type: Report from Study
  Country: BR (occurrence: BR)
  Receive Date: 20190501
  Receipt Date: 20190523
  Transmission Date: 20190711
  Serious: Yes (Other)
  Sender: FDA-Public Use
  Company Number: BR-SHIRE-BR201913436

PATIENT

DRUGS (3)
  1. HYQVIA [Suspect]
     Active Substance: HUMAN IMMUNOGLOBULIN G\HYALURONIDASE RECOMBINANT HUMAN
     Dosage: UNK
     Route: 058
     Dates: start: 20190412
  2. HYQVIA [Suspect]
     Active Substance: HUMAN IMMUNOGLOBULIN G\HYALURONIDASE RECOMBINANT HUMAN
     Dosage: 150 MILLIGRAM, 1X/2WKS
     Route: 058
     Dates: end: 20190425
  3. HYQVIA [Suspect]
     Active Substance: HUMAN IMMUNOGLOBULIN G\HYALURONIDASE RECOMBINANT HUMAN
     Indication: PRODUCT USED FOR UNKNOWN INDICATION
     Dosage: 300 MILLILITER
     Route: 058
     Dates: start: 20190405

REACTIONS (8)
  - Localised infection [Recovering/Resolving]
  - Infusion site swelling [Recovered/Resolved]
  - Allergy to metals [Unknown]
  - Somnolence [Recovered/Resolved]
  - Feeling abnormal [Unknown]
  - Nail hypertrophy [Unknown]
  - Infusion site erythema [Recovered/Resolved]
  - Constipation [Recovered/Resolved]

NARRATIVE: CASE EVENT DATE: 20190405
